FAERS Safety Report 4721822-3 (Version None)
Quarter: 2005Q3

REPORT INFORMATION
  Report Type: 
  Country: None (occurrence: None)
  Receive Date: 20050721
  Receipt Date: 20050429
  Transmission Date: 20060218
  Serious: No
  Sender: FDA-Public Use
  Company Number: US-BRISTOL-MYERS SQUIBB COMPANY-12951356

PATIENT
  Age: 77 Year
  Sex: Male
  Weight: 109 kg

DRUGS (3)
  1. COUMADIN [Suspect]
     Indication: HIP SURGERY
     Dosage: 3 MG DAILY STARTING ON 20-FEB-2005, CURRENT DOSE =6 MG 4XWEEKLY AND 3 MG 3XWEEKLY
     Dates: start: 20050220
  2. PRILOSEC [Concomitant]
  3. MULTI-VITAMIN [Concomitant]

REACTIONS (2)
  - PRURITUS [None]
  - SKIN ULCER [None]
